FAERS Safety Report 7691833-7 (Version None)
Quarter: 2011Q3

REPORT INFORMATION
  Report Type: 
  Country: None (occurrence: None)
  Receive Date: 20110818
  Receipt Date: 20110803
  Transmission Date: 20111222
  Serious: Yes (Other)
  Sender: FDA-Public Use
  Company Number: FR-JNJFOC-20110807270

PATIENT
  Age: 8 Year
  Sex: Female

DRUGS (3)
  1. COLLYRIUM [Concomitant]
     Indication: CONJUNCTIVITIS
     Route: 047
     Dates: start: 20100101
  2. ZYRTEC [Suspect]
     Route: 048
  3. ZYRTEC [Suspect]
     Indication: HYPERSENSITIVITY
     Dosage: 20 DROPS (=10MG) DAILY
     Route: 048
     Dates: start: 20110601, end: 20110802

REACTIONS (2)
  - OCULOGYRIC CRISIS [None]
  - TIC [None]
